FAERS Safety Report 11004784 (Version 4)
Quarter: 2016Q3

REPORT INFORMATION
  Report Type: Report from Study
  Country: FR (occurrence: FR)
  Receive Date: 20150409
  Receipt Date: 20160706
  Transmission Date: 20161109
  Serious: Yes (Hospitalization, Other)
  Sender: FDA-Public Use
  Company Number: PHHO2015FR005364

PATIENT
  Age: 75 Year
  Sex: Female
  Weight: 64 kg

DRUGS (15)
  1. EVEROLIMUS [Suspect]
     Active Substance: EVEROLIMUS
     Dosage: 0.5 MG, QD
     Route: 048
     Dates: end: 20150416
  2. CICLOSPORINE [Concomitant]
     Active Substance: CYCLOSPORINE
     Indication: PRODUCT USED FOR UNKNOWN INDICATION
     Dosage: UNK
     Route: 065
     Dates: start: 20150513
  3. LASILIX [Concomitant]
     Active Substance: FUROSEMIDE
     Indication: PRODUCT USED FOR UNKNOWN INDICATION
     Dosage: 40 MG, QD
     Route: 065
     Dates: start: 20150119
  4. SOLU-MEDROL [Concomitant]
     Active Substance: METHYLPREDNISOLONE SODIUM SUCCINATE
     Indication: PROPHYLAXIS AGAINST TRANSPLANT REJECTION
     Dosage: 10 MG, QD
     Route: 065
  5. EVEROLIMUS [Suspect]
     Active Substance: EVEROLIMUS
     Indication: RENAL TRANSPLANT
     Dosage: 1 MG, QD
     Route: 048
     Dates: start: 20150120
  6. NEORAL [Suspect]
     Active Substance: CYCLOSPORINE
     Indication: RENAL TRANSPLANT
     Dosage: 50 MG, QD
     Route: 065
     Dates: start: 20150120
  7. BACTRIM [Concomitant]
     Active Substance: SULFAMETHOXAZOLE\TRIMETHOPRIM
     Indication: PROPHYLAXIS
     Dosage: 1 DF, QD (IN THE MORNING)
     Route: 065
     Dates: start: 20150119
  8. SMECTA [Concomitant]
     Active Substance: MONTMORILLONITE
     Indication: GASTROINTESTINAL DISORDER
     Dosage: 6/DAY
     Route: 065
  9. SOLUPRED [Concomitant]
     Active Substance: PREDNISOLONE
     Dosage: 5 MG, QD
     Route: 065
  10. LEDERFOLINE [Concomitant]
     Active Substance: LEUCOVORIN CALCIUM
     Indication: PRODUCT USED FOR UNKNOWN INDICATION
     Dosage: 5 MG, QD (IN THE MORNING)
     Route: 065
  11. NEORAL [Suspect]
     Active Substance: CYCLOSPORINE
     Dosage: 20 MG, BID
     Route: 065
     Dates: start: 20150213
  12. IMUREL [Concomitant]
     Active Substance: AZATHIOPRINE SODIUM
     Indication: IMMUNOSUPPRESSION
     Route: 065
  13. SANDIMMUN [Concomitant]
     Active Substance: CYCLOSPORINE
     Indication: PROPHYLAXIS AGAINST TRANSPLANT REJECTION
     Dosage: 15 MG, QD
     Route: 065
  14. AZANTAC [Concomitant]
     Active Substance: RANITIDINE HYDROCHLORIDE
     Indication: PRODUCT USED FOR UNKNOWN INDICATION
     Dosage: 150 MG, QD (IN THE EVENING)
     Route: 065
     Dates: start: 20150118
  15. SOLUPRED [Concomitant]
     Active Substance: PREDNISOLONE
     Indication: PROPHYLAXIS AGAINST TRANSPLANT REJECTION
     Dosage: 0.75 MG, QD
     Route: 065
     Dates: start: 20150119

REACTIONS (9)
  - Wound necrosis [Recovered/Resolved]
  - Acidosis [Recovered/Resolved]
  - Gastroenteritis [Recovered/Resolved]
  - Acute pulmonary oedema [Recovered/Resolved]
  - Renal haematoma [Recovered/Resolved]
  - Infected lymphocele [Recovered/Resolved]
  - Shock haemorrhagic [Recovered/Resolved]
  - Arterial injury [Recovered/Resolved]
  - Acute kidney injury [Recovered/Resolved]

NARRATIVE: CASE EVENT DATE: 20150210
